FAERS Safety Report 7640813-6 (Version None)
Quarter: 2011Q3

REPORT INFORMATION
  Report Type: 
  Country: None (occurrence: None)
  Receive Date: 20110728
  Receipt Date: 20110510
  Transmission Date: 20111222
  Serious: Yes (Hospitalization)
  Sender: FDA-Public Use
  Company Number: US-MUTUAL PHARMACEUTICAL COMPANY, INC.-CLCY20110059

PATIENT
  Sex: Female

DRUGS (1)
  1. COLCRYS [Suspect]
     Indication: OEDEMA PERIPHERAL
     Route: 065

REACTIONS (4)
  - MEDICATION ERROR [None]
  - PAIN [None]
  - DIARRHOEA [None]
  - AGEUSIA [None]
